FAERS Safety Report 9477790 (Version 1)
Quarter: 2013Q3

REPORT INFORMATION
  Report Type: Spontaneous
  Country: PL (occurrence: PL)
  Receive Date: 20130827
  Receipt Date: 20130827
  Transmission Date: 20140515
  Serious: Yes (Other)
  Sender: FDA-Public Use
  Company Number: PL-JNJFOC-20130812147

PATIENT
  Age: 18 Year
  Sex: Female

DRUGS (1)
  1. IBUPROFEN [Suspect]
     Indication: PAIN
     Route: 065

REACTIONS (4)
  - Periorbital oedema [Recovered/Resolved]
  - Urticaria [Recovered/Resolved]
  - C-reactive protein increased [Recovered/Resolved]
  - Interleukin level increased [Recovered/Resolved]
